FAERS Safety Report 4908945-0 (Version None)
Quarter: 2006Q1

REPORT INFORMATION
  Report Type: 
  Country: None (occurrence: None)
  Receive Date: 20060209
  Receipt Date: 20060128
  Transmission Date: 20060701
  Serious: Yes (Other)
  Sender: FDA-Public Use
  Company Number: 2006013559

PATIENT
  Age: 19 Year
  Sex: Male

DRUGS (1)
  1. DRAMAMINE [Suspect]
     Indication: ACCIDENTAL OVERDOSE
     Dosage: 4 TABLETS 3X (12 TOTAL), ORAL
     Route: 048
     Dates: start: 20060128, end: 20060128

REACTIONS (3)
  - ACCIDENTAL EXPOSURE [None]
  - DEPRESSED LEVEL OF CONSCIOUSNESS [None]
  - INCORRECT DOSE ADMINISTERED [None]
